FAERS Safety Report 12118157 (Version 1)
Quarter: 2016Q1

REPORT INFORMATION
  Report Type: Spontaneous
  Country: GB (occurrence: GB)
  Receive Date: 20160226
  Receipt Date: 20160226
  Transmission Date: 20160526
  Serious: Yes (Other)
  Sender: FDA-Public Use
  Company Number: GB-TEVA-636297ACC

PATIENT
  Age: 62 Year
  Sex: Female

DRUGS (19)
  1. THIAMINE. [Concomitant]
     Active Substance: THIAMINE
     Dosage: 200 MILLIGRAM DAILY; AT 8AM AND 6PM; DAILY DOSE: 200MILLIGRAM
     Route: 048
  2. FLUTICASONE PROPIONATE. [Concomitant]
     Active Substance: FLUTICASONE PROPIONATE
     Dosage: 100 MICROGRAM DAILY; AT 8AM AND 10 PM TO BOTH NOSTRILS; DAILY DOSE: 100MICROGRAM
     Route: 045
  3. MACROGOL [Concomitant]
     Active Substance: POLYETHYLENE GLYCOLS
     Indication: CONSTIPATION
     Dosage: 1 SACHET WHEN REQUIRED TWICE A DAY
     Route: 048
  4. DULOXETINE. [Suspect]
     Active Substance: DULOXETINE
     Dosage: 60 MILLIGRAM DAILY; EVERY MORNING; DAULY DOSE: 60MILLIGARM
     Route: 048
  5. HYOSCINE BUTYLBROMIDE [Concomitant]
     Active Substance: BUTYLSCOPOLAMINE
     Dosage: 60 MILLIGRAM DAILY; AT 8AM, 2PM AND 10PM20MG/1ML; DAILY DOSE: 60MILLIGRAM
     Route: 030
  6. LANSOPRAZOLE. [Suspect]
     Active Substance: LANSOPRAZOLE
     Dosage: CONTINUED ON ORAL LANSOPRALZOLE 30MG CAPSULES TWICE DAILY
     Route: 040
  7. VITAMIN B COMPOUND STRONG [Concomitant]
     Dosage: 2 DOSAGE FORMS DAILY; AT 8AM AND 6PM; DAILY DOSE: 2DOSAGE FORMS
     Route: 048
  8. FLUCLOXACILLIN [Concomitant]
     Active Substance: FLUCLOXACILLIN
     Indication: LOWER RESPIRATORY TRACT INFECTION
     Dosage: 2000 MILLIGRAM DAILY;
     Route: 048
     Dates: end: 20151021
  9. PEPPERMINT WATER [Concomitant]
     Indication: ABDOMINAL DISTENSION
     Route: 048
  10. GLYCERYL TRINITRATE [Concomitant]
     Active Substance: NITROGLYCERIN
     Indication: ANGINA PECTORIS
     Dosage: 400 MICORGRAMS/DOSE  1-2 SPRAYS WHEN REQUIRED
     Route: 060
  11. RANITIDINE [Concomitant]
     Active Substance: RANITIDINE\RANITIDINE HYDROCHLORIDE
     Dosage: 150 MILLIGRAM DAILY; EVERY NIGHT; DAILY DOSE: 150MILLIGRAM
     Route: 048
  12. DIAZEPAM. [Suspect]
     Active Substance: DIAZEPAM
     Indication: ANXIETY
     Dosage: 4 TIMES A DAY
     Route: 048
  13. COCODAMOL [Suspect]
     Active Substance: ACETAMINOPHEN\CODEINE PHOSPHATE
     Indication: PAIN
     Dosage: 30/500 ?4 TIMES A DAY
     Route: 048
  14. BIOTENE DRY MOUTH [Concomitant]
     Indication: DRY MOUTH
     Dosage: APPLY TO THE GUMS AND TONGUE WHEN REQUIRED TWICE A DAY
     Route: 048
  15. MIRABEGRON [Concomitant]
     Active Substance: MIRABEGRON
     Dosage: 50 MILLIGRAM DAILY; EVERY MORNING; DAILY DOSE: 50MILLIGRAM
     Route: 048
  16. CYCLIZINE [Concomitant]
     Active Substance: CYCLIZINE
     Dosage: 150 MILLIGRAM DAILY; AT 8AM, 2PM AND 10PM50MG/1ML; DAILY DOSE: 150MILLIGRAM
     Route: 030
  17. GAVISCON ADVANCE [Concomitant]
     Active Substance: POTASSIUM BICARBONATE\SODIUM ALGINATE
     Dosage: 40 ML DAILY;
     Route: 048
  18. GABAPENTIN. [Concomitant]
     Active Substance: GABAPENTIN
     Dosage: 1800 MILLIGRAM DAILY; AT 8 AM, 12PM AND ; DAILY DOSE: 1800MILLIGRAM
     Route: 048
  19. TEMAZEPAM. [Concomitant]
     Active Substance: TEMAZEPAM
     Dosage: 10 MILLIGRAM DAILY; EVERY NIGHT10MG/5ML; DAILY DOSE: 10MILLIGRAM
     Route: 048

REACTIONS (1)
  - Dysgeusia [Recovered/Resolved with Sequelae]
